FAERS Safety Report 23221422 (Version 3)
Quarter: 2024Q3

REPORT INFORMATION
  Report Type: Spontaneous
  Country: TW (occurrence: TW)
  Receive Date: 20231123
  Receipt Date: 20240920
  Transmission Date: 20241017
  Serious: Yes (Death, Hospitalization, Other)
  Sender: ASTELLAS
  Company Number: TW-ASTELLAS-2023US035077

PATIENT
  Age: 68 Year
  Sex: Male

DRUGS (6)
  1. XOSPATA [Suspect]
     Active Substance: GILTERITINIB
     Indication: Acute myeloid leukaemia
     Route: 048
     Dates: start: 20231002, end: 20231009
  2. XOSPATA [Suspect]
     Active Substance: GILTERITINIB
     Indication: FLT3 gene mutation
     Route: 048
     Dates: end: 20231113
  3. TACROLIMUS [Suspect]
     Active Substance: TACROLIMUS
     Indication: Allogenic stem cell transplantation
     Route: 065
     Dates: start: 20230227, end: 20230602
  4. TACROLIMUS [Suspect]
     Active Substance: TACROLIMUS
     Dosage: TAPERED DOSE
     Route: 065
     Dates: end: 202309
  5. TACROLIMUS [Suspect]
     Active Substance: TACROLIMUS
     Route: 065
     Dates: end: 20231113
  6. BUDESONIDE [Concomitant]
     Active Substance: BUDESONIDE
     Indication: Product used for unknown indication
     Route: 065
     Dates: start: 20230227, end: 20230602

REACTIONS (15)
  - Influenza [Fatal]
  - Thrombocytopenia [Unknown]
  - Neutropenia [Unknown]
  - Pneumonia influenzal [Unknown]
  - Respiratory failure [Unknown]
  - Chronic graft versus host disease [Unknown]
  - Acute graft versus host disease in intestine [Unknown]
  - Acute graft versus host disease in skin [Unknown]
  - Sepsis [Unknown]
  - Acute myeloid leukaemia recurrent [Unknown]
  - Cytomegalovirus infection reactivation [Recovered/Resolved]
  - Graft versus host disease in skin [Unknown]
  - COVID-19 [Unknown]
  - Mucosal inflammation [Unknown]
  - Off label use [Unknown]

NARRATIVE: CASE EVENT DATE: 20230227
